FAERS Safety Report 10074126 (Version 1)
Quarter: 2014Q2

REPORT INFORMATION
  Report Type: Spontaneous
  Country: US (occurrence: US)
  Receive Date: 20140411
  Receipt Date: 20140411
  Transmission Date: 20141212
  Serious: No
  Sender: FDA-Public Use
  Company Number: US-SA-2014SA018580

PATIENT
  Age: 62 Year
  Sex: Female

DRUGS (4)
  1. ALLEGRA D [Suspect]
     Indication: HYPERSENSITIVITY
     Dosage: TAKEN FROM:SINCE 2003
     Route: 048
  2. ALLEGRA D [Suspect]
     Indication: HEAD DISCOMFORT
     Dosage: TAKEN FROM:SINCE 2003
     Route: 048
  3. NASAL PREPARATIONS [Concomitant]
  4. NASAL PREPARATIONS [Concomitant]

REACTIONS (3)
  - Influenza [Recovered/Resolved]
  - Increased upper airway secretion [Unknown]
  - Insomnia [Not Recovered/Not Resolved]
